FAERS Safety Report 9410494 (Version 1)
Quarter: 2013Q3

REPORT INFORMATION
  Report Type: Spontaneous
  Country: US (occurrence: None)
  Receive Date: 20130718
  Receipt Date: 20130718
  Transmission Date: 20140515
  Serious: Yes (Life-Threatening, Hospitalization)
  Sender: FDA-Public Use
  Company Number: None

PATIENT
  Age: 17 Year
  Sex: Female
  Weight: 72.58 kg

DRUGS (2)
  1. ETHOSUXIMIDE [Suspect]
     Indication: EPILEPSY
     Route: 048
     Dates: start: 20110820, end: 20120312
  2. ETHOSUXIMIDE [Suspect]
     Indication: PETIT MAL EPILEPSY
     Route: 048
     Dates: start: 20110820, end: 20120312

REACTIONS (3)
  - Aplastic anaemia [None]
  - Bone marrow transplant [None]
  - Apparent death [None]
